FAERS Safety Report 8892321 (Version 1)
Quarter: 2012Q4

REPORT INFORMATION
  Report Type: 
  Country: US (occurrence: US)
  Receive Date: 20121107
  Receipt Date: 20121107
  Transmission Date: 20130627
  Serious: Yes (Other)
  Sender: FDA-Public Use
  Company Number: US-GLAXOSMITHKLINE-A0879983A

PATIENT
  Sex: Female

DRUGS (2)
  1. ROSIGLITAZONE [Suspect]
     Indication: TYPE 2 DIABETES MELLITUS
     Dosage: 4MG Per day
     Route: 048
     Dates: start: 20000125, end: 20051223
  2. AVANDIA [Suspect]
     Indication: DIABETES MELLITUS
     Route: 065
     Dates: start: 20000125

REACTIONS (3)
  - Syncope [Unknown]
  - Chest pain [Unknown]
  - Cardiac disorder [Unknown]
